FAERS Safety Report 13825536 (Version 2)
Quarter: 2017Q3

REPORT INFORMATION
  Report Type: Report from Study
  Country: US (occurrence: US)
  Receive Date: 20170802
  Receipt Date: 20170920
  Transmission Date: 20171127
  Serious: Yes (Death, Hospitalization)
  Sender: FDA-Public Use
  Company Number: US-BAYER-2017-073628

PATIENT
  Age: 77 Year
  Sex: Male

DRUGS (3)
  1. ADEMPAS [Suspect]
     Active Substance: RIOCIGUAT
     Indication: PULMONARY ARTERIAL HYPERTENSION
     Dosage: 0.5 MG, TID
     Route: 048
     Dates: start: 20170210, end: 20170321
  2. ADEMPAS [Suspect]
     Active Substance: RIOCIGUAT
     Indication: PULMONARY ARTERIAL HYPERTENSION
     Dosage: 1 MG, TID
     Route: 048
     Dates: start: 20170210
  3. ADEMPAS [Suspect]
     Active Substance: RIOCIGUAT
     Indication: PULMONARY ARTERIAL HYPERTENSION
     Dosage: 1 MG, TID
     Route: 048
     Dates: start: 20170315

REACTIONS (13)
  - Condition aggravated [None]
  - Death [Fatal]
  - Anaemia [None]
  - Renal failure [None]
  - Asthenia [None]
  - Swelling [None]
  - Anaemia [None]
  - Weight increased [None]
  - Haemoglobin decreased [None]
  - Fluid retention [None]
  - Nasal congestion [None]
  - Anaemia [None]
  - Diarrhoea [None]

NARRATIVE: CASE EVENT DATE: 201703
